FAERS Safety Report 8574857-7 (Version None)
Quarter: 2012Q3

REPORT INFORMATION
  Report Type: 
  Country: None (occurrence: None)
  Receive Date: 20120807
  Receipt Date: 20120725
  Transmission Date: 20120928
  Serious: No
  Sender: FDA-Public Use
  Company Number: US-ROXANE LABORATORIES, INC.-2012-RO-01487RO

PATIENT
  Sex: Female

DRUGS (1)
  1. ROPINIROLE [Suspect]
     Dosage: 4 MG
     Route: 048
     Dates: start: 20120605, end: 20120620

REACTIONS (1)
  - DRUG INEFFECTIVE [None]
